FAERS Safety Report 6575790-2 (Version None)
Quarter: 2010Q1

REPORT INFORMATION
  Report Type: 
  Country: None (occurrence: None)
  Receive Date: 20100208
  Receipt Date: 20100208
  Transmission Date: 20100710
  Serious: Yes (Life-Threatening, Hospitalization, Other)
  Sender: FDA-Public Use
  Company Number: None

PATIENT
  Age: 80 Year
  Sex: Female
  Weight: 48.0813 kg

DRUGS (4)
  1. PACERONE [Suspect]
     Indication: ATRIAL FIBRILLATION
     Dosage: 200 MG 1X/DAY PO
     Route: 048
  2. CORDARONE [Concomitant]
  3. PACERONE [Concomitant]
  4. AMIODARONE [Concomitant]

REACTIONS (11)
  - ALOPECIA [None]
  - ASCITES [None]
  - ASTHENIA [None]
  - ELECTROCARDIOGRAM QT PROLONGED [None]
  - FATIGUE [None]
  - GASTROOESOPHAGEAL REFLUX DISEASE [None]
  - HEPATIC CIRRHOSIS [None]
  - HYPOTHYROIDISM [None]
  - MALAISE [None]
  - QUALITY OF LIFE DECREASED [None]
  - WEIGHT DECREASED [None]
